FAERS Safety Report 8623364 (Version 4)
Quarter: 2012Q4

REPORT INFORMATION
  Report Type: Report from Study
  Country: US (occurrence: US)
  Receive Date: 20120620
  Receipt Date: 20120829
  Transmission Date: 20130627
  Serious: Yes (Hospitalization)
  Sender: FDA-Public Use
  Company Number: US-JNJFOC-20120607999

PATIENT
  Age: 18 Year
  Sex: Female

DRUGS (6)
  1. PREZISTA [Suspect]
     Indication: HIV INFECTION
     Route: 048
     Dates: start: 20111115, end: 20120516
  2. ETRAVIRINE [Suspect]
     Indication: HIV INFECTION
     Route: 048
     Dates: start: 20111115, end: 20120516
  3. RITONAVIR [Suspect]
     Indication: HIV INFECTION
     Route: 048
     Dates: start: 20111115, end: 20120516
  4. ISENTRESS [Suspect]
     Indication: HIV INFECTION
     Route: 048
     Dates: start: 20111115, end: 20120516
  5. EPZICOM [Suspect]
     Indication: HIV INFECTION
     Route: 048
     Dates: start: 20111115, end: 20120516
  6. RETROVIR [Suspect]
     Indication: HIV INFECTION
     Route: 042
     Dates: start: 20120515, end: 20120516

REACTIONS (2)
  - Amniotic fluid volume decreased [Unknown]
  - Exposure during pregnancy [Recovered/Resolved]
